FAERS Safety Report 8047317-X (Version None)
Quarter: 2012Q1

REPORT INFORMATION
  Report Type: 
  Country: None (occurrence: None)
  Receive Date: 20120116
  Receipt Date: 20120110
  Transmission Date: 20120608
  Serious: Yes (Other)
  Sender: FDA-Public Use
  Company Number: US-TEVA-316822USA

PATIENT
  Sex: Male

DRUGS (1)
  1. TRIAMCINOLONE [Suspect]
     Route: 045
     Dates: start: 20120101

REACTIONS (2)
  - COUGH [None]
  - THROAT TIGHTNESS [None]
